FAERS Safety Report 7277482-3 (Version None)
Quarter: 2011Q1

REPORT INFORMATION
  Report Type: 
  Country: None (occurrence: None)
  Receive Date: 20110207
  Receipt Date: 20110124
  Transmission Date: 20110831
  Serious: Yes (Other)
  Sender: FDA-Public Use
  Company Number: US-ELI_LILLY_AND_COMPANY-US201009004847

PATIENT
  Sex: Female

DRUGS (9)
  1. FORTEO [Suspect]
     Indication: OSTEOPOROSIS
     Dosage: 20 UG, DAILY (1/D)
     Route: 065
     Dates: start: 20100905
  2. CALCIUM VIT D [Concomitant]
     Dosage: 600 MG, 2/D
  3. TRAZODIL [Concomitant]
     Dosage: 100 MG, DAILY (1/D) (AT NIGHT)
  4. CITALOPRAM HYDROBROMIDE [Concomitant]
     Dosage: 40 MG, EACH MORNING
  5. FISH OIL [Concomitant]
     Dosage: 2000 MG, 2/D
  6. VITAMIN D [Concomitant]
     Dosage: 2000 IU, EACH MORNING
  7. ASPIRIN [Concomitant]
     Dosage: 81 MG, EACH MORNING
  8. METOPROLOL TARTRATE [Concomitant]
     Dosage: 25 MG, EACH EVENING
  9. GABAPENTIN [Concomitant]
     Dosage: 2 (CAPSULES) D/F, EACH EVENING

REACTIONS (8)
  - RIB FRACTURE [None]
  - CONTUSION [None]
  - DIZZINESS [None]
  - COORDINATION ABNORMAL [None]
  - PAIN [None]
  - FALL [None]
  - BALANCE DISORDER [None]
  - ASTHENIA [None]
